FAERS Safety Report 6814633-6 (Version None)
Quarter: 2010Q2

REPORT INFORMATION
  Report Type: 
  Country: None (occurrence: None)
  Receive Date: 20100629
  Receipt Date: 20100617
  Transmission Date: 20101027
  Serious: Yes (Other)
  Sender: FDA-Public Use
  Company Number: BR-1182349

PATIENT
  Age: 49 Year
  Sex: Female

DRUGS (4)
  1. MYDRIACYL [Suspect]
     Indication: OPTICAL COHERENCE TOMOGRAPHY
     Dosage: 1 FTT 2X OU OPHTHALMIC
     Route: 047
     Dates: start: 20100127, end: 20100127
  2. ATACAND [Concomitant]
  3. CRESTOR [Concomitant]
  4. GENTEAL (HYPROMELLOSE) [Concomitant]

REACTIONS (3)
  - CONDITION AGGRAVATED [None]
  - STRESS [None]
  - VISION BLURRED [None]
